FAERS Safety Report 9454453 (Version 1)
Quarter: 2013Q3

REPORT INFORMATION
  Report Type: Spontaneous
  Country: JP (occurrence: JP)
  Receive Date: 20130812
  Receipt Date: 20130812
  Transmission Date: 20140515
  Serious: Yes (Other)
  Sender: FDA-Public Use
  Company Number: JP-BANPHARM-20131564

PATIENT
  Age: 59 Year
  Sex: Female

DRUGS (3)
  1. AMANTADINE UNKNOWN PRODUCT [Suspect]
     Route: 048
  2. CLONAZEPAM [Suspect]
     Route: 048
  3. SETIPTILINE [Suspect]
     Route: 048

REACTIONS (1)
  - Neuroleptic malignant syndrome [Recovered/Resolved]
